FAERS Safety Report 22137093 (Version 1)
Quarter: 2023Q1

REPORT INFORMATION
  Report Type: Spontaneous
  Country: US (occurrence: US)
  Receive Date: 20230324
  Receipt Date: 20230324
  Transmission Date: 20230417
  Serious: Yes (Hospitalization, Other)
  Sender: FDA-Public Use
  Company Number: US-HORIZON THERAPEUTICS-HZN-2023-002141

PATIENT

DRUGS (13)
  1. PREDNISONE [Suspect]
     Active Substance: PREDNISONE
     Indication: Cough
     Dosage: COMPLETION OF A 2.5-MONTH COURSE OF ORAL PREDNISONE (20?40MG)
     Route: 048
  2. LEVOFLOXACIN [Concomitant]
     Active Substance: LEVOFLOXACIN
     Indication: Cough
     Dosage: 500 MG, 5 DAY COURSE
     Route: 065
  3. BALSALAZIDE [Concomitant]
     Active Substance: BALSALAZIDE
     Indication: Colitis ulcerative
     Dosage: 750 MG, BID
     Route: 065
  4. PROBIOTICS NOS [Concomitant]
     Active Substance: PROBIOTICS NOS
     Indication: Colitis ulcerative
     Dosage: DAILY 550 MG PROBIOTIC SUPPLEMENTATION CONTAINING A BLEND OF SIX LACTOBACILLI SPECIES AT A CONCENTRA
     Route: 065
  5. VANCOMYCIN [Concomitant]
     Active Substance: VANCOMYCIN
     Indication: Respiratory tract infection
     Route: 042
  6. CEFEPIME [Concomitant]
     Active Substance: CEFEPIME HYDROCHLORIDE
     Indication: Respiratory tract infection
     Route: 042
  7. AZITHROMYCIN [Concomitant]
     Active Substance: AZITHROMYCIN
     Indication: Respiratory tract infection
     Route: 042
  8. LACTATED RINGERS SOLUTION [Concomitant]
     Active Substance: CALCIUM CHLORIDE\POTASSIUM CHLORIDE\SODIUM CHLORIDE\SODIUM LACTATE
     Indication: Respiratory tract infection
     Route: 042
  9. MIDODRINE [Concomitant]
     Active Substance: MIDODRINE
     Indication: Blood pressure decreased
     Route: 065
  10. HYDROCORTISONE [Concomitant]
     Active Substance: HYDROCORTISONE
     Indication: Blood pressure decreased
     Route: 065
  11. AMPICILLIN [Concomitant]
     Active Substance: AMPICILLIN
     Dosage: 2G EVERY 6HOURS FOR 14 DAYS
     Route: 042
  12. GENTAMICIN [Concomitant]
     Active Substance: GENTAMICIN
     Dosage: 1 MG/KG, EVERY 12 HRS
     Route: 042
  13. AMOXICILLIN [Concomitant]
     Active Substance: AMOXICILLIN
     Dosage: 500 MG, EVERY 12 HRS
     Route: 048

REACTIONS (6)
  - Bacillus bacteraemia [Unknown]
  - Septic shock [Unknown]
  - Prosthetic valve endocarditis [Unknown]
  - Endocarditis [Unknown]
  - Septic cerebral embolism [Unknown]
  - Off label use [Unknown]
